FAERS Safety Report 21309379 (Version 1)
Quarter: 2022Q3

REPORT INFORMATION
  Report Type: Spontaneous
  Country: US (occurrence: US)
  Receive Date: 20220908
  Receipt Date: 20220908
  Transmission Date: 20221027
  Serious: No
  Sender: FDA-Public Use
  Company Number: US-BRAINTREE LABORATORIES, INC.-2022BTE00211

PATIENT
  Age: 64 Year
  Sex: Female
  Weight: 58.957 kg

DRUGS (6)
  1. SUPREP BOWEL PREP [Suspect]
     Active Substance: MAGNESIUM SULFATE\POTASSIUM SULFATE\SODIUM SULFATE
     Indication: Colonoscopy
     Dosage: 1 X 6 OZ. BOTTLE, 1X
     Route: 048
     Dates: start: 20220317, end: 20220317
  2. MAGNESIUM CITRATE [Suspect]
     Active Substance: MAGNESIUM CITRATE
     Indication: Colonoscopy
     Dosage: 1 BOTTLE, 1X
     Route: 048
     Dates: start: 20220317, end: 20220317
  3. ALBUTEROL [Concomitant]
     Active Substance: ALBUTEROL
  4. OMEPRAZOLE [Concomitant]
     Active Substance: OMEPRAZOLE
  5. UNSPECIFIED MEDICATION FOR HIGH CHOLESTEROL [Concomitant]
  6. UNSPECIFIED MEDICATION FOR HIGH BLOOD PRESSURE [Concomitant]

REACTIONS (1)
  - Vomiting [Recovered/Resolved]

NARRATIVE: CASE EVENT DATE: 20220317
